FAERS Safety Report 19618338 (Version 2)
Quarter: 2021Q3

REPORT INFORMATION
  Report Type: Report from Study
  Country: None (occurrence: US)
  Receive Date: 20210728
  Receipt Date: 20210803
  Transmission Date: 20211014
  Serious: Yes (Hospitalization, Other)
  Sender: FDA-Public Use
  Company Number: US-ABBVIE-21K-163-4006661-00

PATIENT
  Age: 86 Year
  Sex: Male

DRUGS (6)
  1. DUOPA [Suspect]
     Active Substance: CARBIDOPA\LEVODOPA
  2. MODERNA COVID?19 VACCINE [Concomitant]
     Active Substance: CX-024414
     Indication: COVID-19 IMMUNISATION
     Dosage: MFR ? MODERNA
     Route: 030
     Dates: start: 20210228, end: 20210228
  3. DUOPA [Suspect]
     Active Substance: CARBIDOPA\LEVODOPA
     Indication: PRODUCT USED FOR UNKNOWN INDICATION
     Route: 050
     Dates: start: 201605
  4. PREDNISONE. [Suspect]
     Active Substance: PREDNISONE
     Indication: INFECTION
     Route: 065
     Dates: start: 202005, end: 2020
  5. NUPLAZID [Suspect]
     Active Substance: PIMAVANSERIN TARTRATE
     Indication: PRODUCT USED FOR UNKNOWN INDICATION
     Route: 065
  6. FLUTICASONE. [Concomitant]
     Active Substance: FLUTICASONE
     Indication: PRODUCT USED FOR UNKNOWN INDICATION
     Dosage: 2 SPR
     Route: 045

REACTIONS (14)
  - Intentional product use issue [Not Recovered/Not Resolved]
  - Decreased appetite [Recovering/Resolving]
  - Asthenia [Recovering/Resolving]
  - Dysphagia [Recovering/Resolving]
  - Urinary tract infection [Recovered/Resolved]
  - Dehydration [Recovered/Resolved]
  - General physical health deterioration [Not Recovered/Not Resolved]
  - Sepsis [Recovered/Resolved]
  - Blood lactic acid increased [Unknown]
  - White blood cell count increased [Recovering/Resolving]
  - Mental disorder [Not Recovered/Not Resolved]
  - Aspiration [Recovered/Resolved]
  - Infection [Recovered/Resolved]
  - Cough [Recovering/Resolving]

NARRATIVE: CASE EVENT DATE: 2020
